FAERS Safety Report 6754134-7 (Version None)
Quarter: 2010Q2

REPORT INFORMATION
  Report Type: 
  Country: None (occurrence: None)
  Receive Date: 20100601
  Receipt Date: 20100517
  Transmission Date: 20101027
  Serious: Yes (Hospitalization)
  Sender: FDA-Public Use
  Company Number: 1000013891

PATIENT
  Age: 76 Year
  Sex: Female

DRUGS (6)
  1. CARBAMAZEPINE [Suspect]
     Indication: MYOCLONIC EPILEPSY
  2. PHENOBARBITAL [Concomitant]
  3. LEVODOPA [Concomitant]
  4. AMANTADINE HCL [Concomitant]
  5. CITALOPRAM [Concomitant]
  6. MIANSERIN [Concomitant]

REACTIONS (5)
  - CONDITION AGGRAVATED [None]
  - CONFUSIONAL STATE [None]
  - EPILEPSY [None]
  - FALL [None]
  - MYOCLONUS [None]
